FAERS Safety Report 15852574 (Version 3)
Quarter: 2019Q2

REPORT INFORMATION
  Report Type: Report from Study
  Country: DE (occurrence: DE)
  Receive Date: 20190122
  Receipt Date: 20190516
  Transmission Date: 20190711
  Serious: Yes (Hospitalization)
  Sender: FDA-Public Use
  Company Number: DE-ACTELION-A-CH2019-184959

PATIENT
  Age: 64 Year
  Sex: Male
  Weight: 72 kg

DRUGS (2)
  1. OPSUMIT [Suspect]
     Active Substance: MACITENTAN
     Indication: PULMONARY ARTERIAL HYPERTENSION
     Dosage: 10 MG, QD
     Route: 048
     Dates: start: 20180713
  2. UPTRAVI [Concomitant]
     Active Substance: SELEXIPAG
     Dosage: 400 MCG, BID
     Route: 048
     Dates: start: 201901

REACTIONS (3)
  - Cardiac failure [Recovered/Resolved]
  - Systemic scleroderma [Recovered/Resolved]
  - Disease progression [Recovered/Resolved]
